FAERS Safety Report 21782806 (Version 1)
Quarter: 2022Q4

REPORT INFORMATION
  Report Type: Other
  Country: CA (occurrence: None)
  Receive Date: 20221227
  Receipt Date: 20221227
  Transmission Date: 20230112
  Serious: Yes (Other)
  Sender: FDA-Public Use
  Company Number: CA-ROCHE-3251794

PATIENT

DRUGS (2)
  1. CAPECITABINE [Suspect]
     Active Substance: CAPECITABINE
     Indication: Gastroenteropancreatic neuroendocrine tumour disease
     Route: 065
  2. TEMOZOLOMIDE [Suspect]
     Active Substance: TEMOZOLOMIDE
     Indication: Gastroenteropancreatic neuroendocrine tumour disease
     Route: 065

REACTIONS (3)
  - Cytopenia [Unknown]
  - Fatigue [Unknown]
  - Off label use [Unknown]
